FAERS Safety Report 4517528-6 (Version None)
Quarter: 2004Q4

REPORT INFORMATION
  Report Type: 
  Country: None (occurrence: None)
  Receive Date: 20041027
  Receipt Date: 20040819
  Transmission Date: 20050328
  Serious: No
  Sender: FDA-Public Use
  Company Number: US088081

PATIENT
  Sex: Female

DRUGS (7)
  1. SENSIPAR [Suspect]
     Indication: HYPERPARATHYROIDISM SECONDARY
     Dosage: 30 MG, 1 IN 1 WEEKS, PO
     Route: 048
     Dates: start: 20040810, end: 20040827
  2. AZATHIOPRINE [Concomitant]
  3. PREDNISONE [Concomitant]
  4. LEVOTHYROXINE SODIUM [Concomitant]
  5. LANSOPRAZOLE [Concomitant]
  6. ISOSORBIDE DINITRATE [Concomitant]
  7. NITROGLYCERIN [Concomitant]

REACTIONS (5)
  - ANGINA PECTORIS [None]
  - ERYTHEMA [None]
  - NAUSEA [None]
  - RASH [None]
  - VOMITING [None]
